FAERS Safety Report 6132375-X (Version None)
Quarter: 2009Q1

REPORT INFORMATION
  Report Type: 
  Country: None (occurrence: None)
  Receive Date: 20090325
  Receipt Date: 20090317
  Transmission Date: 20090719
  Serious: Yes (Hospitalization)
  Sender: FDA-Public Use
  Company Number: PHHY2009FR08424

PATIENT
  Sex: Female

DRUGS (7)
  1. EXELON [Suspect]
     Indication: DEMENTIA ALZHEIMER'S TYPE
     Dosage: 9.5 MG, QD
     Route: 062
     Dates: start: 20081201, end: 20090216
  2. EXELON [Suspect]
     Indication: ANGIOPATHY
  3. ACETAMINOPHEN AND CODEINE PHOSPHATE [Suspect]
     Indication: NECK PAIN
     Dosage: UNK
     Dates: start: 20090201
  4. ZOCOR [Concomitant]
     Dosage: 20 MG, QD
     Route: 048
     Dates: end: 20090216
  5. EFFEXOR [Concomitant]
     Dosage: 37.5 MG, BID
     Route: 048
  6. ALEPSAL [Concomitant]
     Dosage: 100 MG, QD
     Route: 048
  7. SECTRAL [Concomitant]
     Dosage: 100 MG, QD
     Route: 048

REACTIONS (8)
  - ABDOMINAL PAIN [None]
  - BLOOD ALKALINE PHOSPHATASE INCREASED [None]
  - CHOLESTASIS [None]
  - CYTOLYTIC HEPATITIS [None]
  - HEPATITIS A POSITIVE [None]
  - NECK PAIN [None]
  - TRANSAMINASES INCREASED [None]
  - VOMITING [None]
